FAERS Safety Report 22040421 (Version 4)
Quarter: 2023Q1

REPORT INFORMATION
  Report Type: Report from Study
  Country: US (occurrence: None)
  Receive Date: 20230227
  Receipt Date: 20230323
  Transmission Date: 20230417
  Serious: Yes (Death, Hospitalization)
  Sender: FDA-Public Use
  Company Number: US-ROCHE-3292640

PATIENT
  Age: 79 Year
  Sex: Male
  Weight: 83.3 kg

DRUGS (2)
  1. ATEZOLIZUMAB [Suspect]
     Active Substance: ATEZOLIZUMAB
     Indication: Hormone-refractory prostate cancer
     Dosage: 26 CYCLES EVERY 21 DAYS
     Route: 041
     Dates: start: 20230116, end: 20230116
  2. ABEMACICLIB [Suspect]
     Active Substance: ABEMACICLIB
     Indication: Hormone-refractory prostate cancer
     Route: 048
     Dates: start: 20230116, end: 20230203

REACTIONS (2)
  - Hepatic failure [Fatal]
  - Sepsis [Fatal]

NARRATIVE: CASE EVENT DATE: 20230213
